FAERS Safety Report 9847989 (Version 1)
Quarter: 2014Q1

REPORT INFORMATION
  Report Type: Spontaneous
  Country: US (occurrence: None)
  Receive Date: 20140117
  Receipt Date: 20140117
  Transmission Date: 20141002
  Serious: Yes (Death)
  Sender: FDA-Public Use
  Company Number: B0963040A

PATIENT
  Age: 24 Year
  Sex: Male

DRUGS (6)
  1. CLONAZEPAM [Suspect]
  2. PAROXETINE HYDROCHLORIDE [Suspect]
  3. DIAMORPHINE HYDROCHLORIDE [Suspect]
  4. FLUOXETINE [Suspect]
  5. COCAINE (COCAINE) [Suspect]
     Route: 051
  6. CODEINE [Suspect]

REACTIONS (1)
  - Drug abuse [None]
